FAERS Safety Report 8577458-X (Version None)
Quarter: 2012Q3

REPORT INFORMATION
  Report Type: 
  Country: None (occurrence: None)
  Receive Date: 20120807
  Receipt Date: 20120727
  Transmission Date: 20120928
  Serious: Yes (Other)
  Sender: FDA-Public Use
  Company Number: PHHY2012JP062477

PATIENT
  Age: 44 Year
  Sex: Male

DRUGS (3)
  1. PREDNISOLONE [Suspect]
     Indication: NEPHROTIC SYNDROME
     Dosage: 40 MG, UNK
  2. CYCLOSPORINE [Suspect]
     Indication: NEPHROTIC SYNDROME
     Dosage: 100 MG, DAILY
     Dates: end: 20111001
  3. PREDNISOLONE [Suspect]
     Dosage: 30 MG, UNK

REACTIONS (1)
  - HEPATIC FUNCTION ABNORMAL [None]
